FAERS Safety Report 4960025-4 (Version None)
Quarter: 2006Q1

REPORT INFORMATION
  Report Type: 
  Country: None (occurrence: None)
  Receive Date: 20060331
  Receipt Date: 20051007
  Transmission Date: 20060701
  Serious: Yes (Hospitalization, Other)
  Sender: FDA-Public Use
  Company Number: US-MERCK-0510USA05632

PATIENT
  Age: 71 Year
  Sex: Male
  Weight: 93 kg

DRUGS (1)
  1. VIOXX [Suspect]
     Indication: ARTHRITIS
     Route: 048

REACTIONS (10)
  - APHASIA [None]
  - CARDIOVASCULAR DISORDER [None]
  - CATHETERISATION CARDIAC [None]
  - CEREBROVASCULAR ACCIDENT [None]
  - DYSPNOEA [None]
  - FATIGUE [None]
  - HEMIPLEGIA [None]
  - INTERVERTEBRAL DISC PROTRUSION [None]
  - RENAL IMPAIRMENT [None]
  - VIRAL INFECTION [None]
